FAERS Safety Report 6183992-2 (Version None)
Quarter: 2009Q2

REPORT INFORMATION
  Report Type: 
  Country: None (occurrence: None)
  Receive Date: 20090508
  Receipt Date: 20090428
  Transmission Date: 20091009
  Serious: Yes (Death, Hospitalization)
  Sender: FDA-Public Use
  Company Number: SE-JNJFOC-20090406810

PATIENT
  Age: 57 Year
  Sex: Male

DRUGS (1)
  1. REMICADE [Suspect]
     Indication: CROHN'S DISEASE
     Dosage: TOTAL OF 8 INFUSIONS
     Route: 042

REACTIONS (4)
  - DEATH [None]
  - DRUG INEFFECTIVE [None]
  - GASTRIC CANCER [None]
  - NEOPLASM MALIGNANT [None]
